FAERS Safety Report 5514698-8 (Version None)
Quarter: 2007Q4

REPORT INFORMATION
  Report Type: 
  Country: None (occurrence: None)
  Receive Date: 20071113
  Receipt Date: 20071101
  Transmission Date: 20080405
  Serious: Yes (Other)
  Sender: FDA-Public Use
  Company Number: CA-PFIZER INC-2007093444

PATIENT
  Sex: Male

DRUGS (1)
  1. CHAMPIX [Suspect]
     Indication: SMOKING CESSATION THERAPY
     Dosage: TEXT:0.5MG BID
     Route: 048

REACTIONS (11)
  - ACTIVITIES OF DAILY LIVING IMPAIRED [None]
  - COLD SWEAT [None]
  - DISTURBANCE IN ATTENTION [None]
  - EYE PAIN [None]
  - FATIGUE [None]
  - FEELING ABNORMAL [None]
  - INFLUENZA LIKE ILLNESS [None]
  - INSOMNIA [None]
  - NAUSEA [None]
  - URTICARIA [None]
  - WEIGHT DECREASED [None]
